FAERS Safety Report 6697661-3 (Version None)
Quarter: 2010Q2

REPORT INFORMATION
  Report Type: 
  Country: None (occurrence: None)
  Receive Date: 20100423
  Receipt Date: 20100416
  Transmission Date: 20101027
  Serious: Yes (Hospitalization, Other)
  Sender: FDA-Public Use
  Company Number: TRP_06923_2010

PATIENT
  Sex: Female

DRUGS (3)
  1. RIBAVARIN [Suspect]
     Indication: HEPATITIS C
     Dosage: ORAL
     Route: 048
     Dates: start: 20100312
  2. PEG-INTRON [Suspect]
     Indication: HEPATITIS C
     Dosage: SUBCUTANEOUS
     Route: 058
     Dates: start: 20100312
  3. ATENOLOL [Concomitant]

REACTIONS (4)
  - BLOOD SODIUM DECREASED [None]
  - DECREASED APPETITE [None]
  - DYSPEPSIA [None]
  - LOSS OF CONSCIOUSNESS [None]
